FAERS Safety Report 10235070 (Version 1)
Quarter: 2014Q2

REPORT INFORMATION
  Report Type: Report from Study
  Country: AU (occurrence: AU)
  Receive Date: 20140613
  Receipt Date: 20140613
  Transmission Date: 20141212
  Serious: Yes (Hospitalization, Other)
  Sender: FDA-Public Use
  Company Number: PHHY2014AU072277

PATIENT
  Age: 82 Year
  Sex: Male

DRUGS (15)
  1. ACLASTA [Suspect]
     Indication: OSTEOPOROSIS
     Dosage: UNK UKN, UNK
     Route: 042
     Dates: start: 20101115
  2. ACLASTA [Suspect]
     Dosage: UNK UKN, UNK
     Route: 042
     Dates: start: 20111117
  3. ACLASTA [Suspect]
     Dosage: UNK UKN, UNK
     Route: 042
     Dates: start: 20121114
  4. ASPIRIN [Concomitant]
     Dosage: 100 MG, QD
  5. ATORVASTATIN [Concomitant]
     Dosage: 80 MG, QD
  6. BETAVIT [Concomitant]
     Dosage: 100 MG, QD
  7. CLOPIDOGREL [Concomitant]
     Dosage: 75 MG, QD
  8. CREON [Concomitant]
     Dosage: 1 CAPSULE, TID
  9. FERRO-F [Concomitant]
     Dosage: 350 UG, QD
  10. FUROSEMIDE [Concomitant]
     Dosage: 20 MG, 1 IN MORNING
  11. MINAX [Concomitant]
     Dosage: 0.5 TABLET, TWICE A DAY
  12. NICORANDIL [Concomitant]
     Dosage: 10 MG, BID
  13. OSTELIN VITAMIN D [Concomitant]
     Dosage: 1000 IU, QD
  14. PANADOL OSTEO [Concomitant]
     Dosage: 665 MG, TID
  15. SOMAC [Concomitant]
     Dosage: 40 MG, PRN

REACTIONS (8)
  - Angina pectoris [Recovered/Resolved]
  - Coronary artery disease [Unknown]
  - Acute myocardial infarction [Unknown]
  - Pancreatic cyst [Unknown]
  - Myocardial ischaemia [Unknown]
  - Vitamin D deficiency [Unknown]
  - Muscle spasms [Unknown]
  - Pain [Unknown]
